FAERS Safety Report 6164506-X (Version None)
Quarter: 2009Q2

REPORT INFORMATION
  Report Type: 
  Country: None (occurrence: None)
  Receive Date: 20090421
  Receipt Date: 20090415
  Transmission Date: 20091009
  Serious: Yes (Hospitalization)
  Sender: FDA-Public Use
  Company Number: POMP-1000568

PATIENT
  Age: 11 Month
  Sex: Female

DRUGS (1)
  1. MYOZYME [Suspect]
     Indication: GLYCOGEN STORAGE DISEASE TYPE II
     Dosage: 21 MG/KG, QOW, INTRAVENOUS
     Route: 042
     Dates: start: 20081218

REACTIONS (3)
  - ASPIRATION [None]
  - BACILLUS INFECTION [None]
  - URINARY TRACT INFECTION BACTERIAL [None]
